FAERS Safety Report 15091693 (Version 1)
Quarter: 2018Q2

REPORT INFORMATION
  Report Type: Report from Study
  Country: US (occurrence: US)
  Receive Date: 20180629
  Receipt Date: 20180629
  Transmission Date: 20180711
  Serious: No
  Sender: FDA-Public Use
  Company Number: US-AMGEN-USASP2011025450

PATIENT
  Age: 60 Year
  Sex: Female

DRUGS (4)
  1. CALCIUM [Concomitant]
     Active Substance: CALCIUM
  2. VITAMIN D [Concomitant]
     Active Substance: CHOLECALCIFEROL
  3. PROLIA [Suspect]
     Active Substance: DENOSUMAB
     Indication: OSTEOPOROSIS POSTMENOPAUSAL
     Dosage: 60 MG, Q6MO
     Dates: start: 20110406
  4. CORGARD [Concomitant]
     Active Substance: NADOLOL

REACTIONS (4)
  - Pain in jaw [Not Recovered/Not Resolved]
  - Headache [Unknown]
  - Muscle tightness [Unknown]
  - Trismus [Unknown]

NARRATIVE: CASE EVENT DATE: 20110413
